FAERS Safety Report 4280775-5 (Version None)
Quarter: 2004Q1

REPORT INFORMATION
  Report Type: 
  Country: None (occurrence: None)
  Receive Date: 20040127
  Receipt Date: 20040112
  Transmission Date: 20041129
  Serious: Yes (Hospitalization)
  Sender: FDA-Public Use
  Company Number: M04-341-008

PATIENT
  Age: 71 Year
  Sex: Male

DRUGS (1)
  1. VELCADE [Suspect]
     Indication: MULTIPLE MYELOMA
     Dates: start: 20040105, end: 20040105

REACTIONS (5)
  - DEHYDRATION [None]
  - FATIGUE [None]
  - MENTAL STATUS CHANGES [None]
  - NEUTROPENIA [None]
  - PYREXIA [None]
